FAERS Safety Report 8328255-1 (Version None)
Quarter: 2012Q2

REPORT INFORMATION
  Report Type: 
  Country: None (occurrence: None)
  Receive Date: 20120502
  Receipt Date: 20120423
  Transmission Date: 20120825
  Serious: Yes (Other)
  Sender: FDA-Public Use
  Company Number: JP-ASTELLAS-2012JP003679

PATIENT
  Age: 32 Year
  Sex: Male

DRUGS (3)
  1. PROGRAF [Suspect]
     Indication: LIVER TRANSPLANT
     Route: 065
  2. GANCICLOVIR [Concomitant]
     Route: 065
  3. SULFASALAZINE [Concomitant]
     Route: 065

REACTIONS (3)
  - COLITIS ULCERATIVE [None]
  - AUTOIMMUNE HEPATITIS [None]
  - CYTOMEGALOVIRUS INFECTION [None]
